FAERS Safety Report 5774792-3 (Version None)
Quarter: 2008Q2

REPORT INFORMATION
  Report Type: 
  Country: None (occurrence: None)
  Receive Date: 20080612
  Receipt Date: 20080605
  Transmission Date: 20081010
  Serious: Yes (Hospitalization)
  Sender: FDA-Public Use
  Company Number: 2008AL006241

PATIENT
  Age: 80 Year
  Sex: Female

DRUGS (15)
  1. DIGOXIN [Suspect]
     Indication: CARDIAC FAILURE CONGESTIVE
     Dosage: 0.125 MG,QD,PO
     Route: 048
     Dates: end: 20080501
  2. LANOXIN [Concomitant]
  3. PLAVIX [Concomitant]
  4. LIPITOR [Concomitant]
  5. LASIX [Concomitant]
  6. ZETIA [Concomitant]
  7. KLOR-CON [Concomitant]
  8. ASPIRIN [Concomitant]
  9. PRIMIDONE [Concomitant]
  10. AZAERO [Concomitant]
  11. DIAZEPAM [Concomitant]
  12. METOPROLOL [Concomitant]
  13. SPIRONOLACTONE [Concomitant]
  14. ISOSORBIDE DINITRATE [Concomitant]
  15. PRED-FORTE (EYE DROPS [Concomitant]

REACTIONS (3)
  - ANEURYSM [None]
  - CORONARY ARTERY OCCLUSION [None]
  - PHARMACEUTICAL PRODUCT COMPLAINT [None]
